FAERS Safety Report 7893075-9 (Version None)
Quarter: 2011Q4

REPORT INFORMATION
  Report Type: 
  Country: None (occurrence: None)
  Receive Date: 20111104
  Receipt Date: 20111025
  Transmission Date: 20120403
  Serious: Yes (Death, Hospitalization, Other)
  Sender: FDA-Public Use
  Company Number: BR-PFIZER INC-2011264222

PATIENT
  Age: 34 Year
  Sex: Female
  Weight: 56 kg

DRUGS (13)
  1. VANCOMYCIN HCL [Suspect]
  2. PROPRANOLOL [Suspect]
     Dosage: 40 MG, 2X/DAY
  3. DIPYRONE TAB [Suspect]
  4. NYSTATIN [Suspect]
  5. NITRIC OXIDE [Concomitant]
  6. CEFTRIAXONE SODIUM [Suspect]
     Indication: PYELONEPHRITIS
     Dosage: 2 G, 1X/DAY
     Route: 030
  7. GANCICLOVIR [Suspect]
  8. CLARITHROMYCIN [Suspect]
  9. OXYTOCIN [Concomitant]
     Dosage: 15 IU, UNK
  10. FUROSEMIDE [Suspect]
     Dosage: 40 MG, 2X/DAY
  11. MACRODANTIN [Suspect]
     Indication: PROPHYLAXIS
  12. IMIPENEM [Suspect]
  13. CEFTRIAXONE SODIUM [Suspect]
     Indication: TRACHEOBRONCHITIS

REACTIONS (37)
  - AGRANULOCYTOSIS [None]
  - MATERNAL EXPOSURE DURING PREGNANCY [None]
  - CARDIOMEGALY [None]
  - ORAL CANDIDIASIS [None]
  - AGITATION [None]
  - PULMONARY NECROSIS [None]
  - BONE MARROW OEDEMA [None]
  - MULTI-ORGAN FAILURE [None]
  - CONVULSION [None]
  - KIDNEY FIBROSIS [None]
  - RENAL TUBULAR ATROPHY [None]
  - BRONCHOPNEUMONIA [None]
  - METABOLIC ACIDOSIS [None]
  - CAESAREAN SECTION [None]
  - RESPIRATORY DISTRESS [None]
  - BONE MARROW FAILURE [None]
  - OLIGOHYDRAMNIOS [None]
  - AORTIC VALVE INCOMPETENCE [None]
  - HYPOVOLAEMIC SHOCK [None]
  - RENAL FAILURE ACUTE [None]
  - CARDIOGENIC SHOCK [None]
  - HYPOTENSION [None]
  - PULMONARY HYPERTENSION [None]
  - CARDIAC ARREST [None]
  - FEBRILE NEUTROPENIA [None]
  - SEPTIC SHOCK [None]
  - PULMONARY CONGESTION [None]
  - TRICUSPID VALVE INCOMPETENCE [None]
  - PARVOVIRUS B19 TEST POSITIVE [None]
  - PULMONARY EMBOLISM [None]
  - TRACHEOBRONCHITIS [None]
  - DEPRESSED LEVEL OF CONSCIOUSNESS [None]
  - PREMATURE DELIVERY [None]
  - POSTPARTUM SEPSIS [None]
  - BRONCHOPULMONARY ASPERGILLOSIS [None]
  - CYTOMEGALOVIRUS TEST POSITIVE [None]
  - MITRAL VALVE STENOSIS [None]
